FAERS Safety Report 7112627-7 (Version None)
Quarter: 2010Q4

REPORT INFORMATION
  Report Type: 
  Country: None (occurrence: None)
  Receive Date: 20101119
  Receipt Date: 20101108
  Transmission Date: 20110411
  Serious: Yes (Hospitalization)
  Sender: FDA-Public Use
  Company Number: US-SOLVAY-00210006694

PATIENT
  Age: 25775 Day
  Sex: Male
  Weight: 75 kg

DRUGS (3)
  1. ASPIRIN [Concomitant]
     Indication: PROPHYLAXIS
     Dosage: DAILY DOSE: 81 MILLIGRAM(S)
     Route: 048
     Dates: start: 20070101, end: 20101102
  2. ANDROGEL [Suspect]
     Indication: BLOOD TESTOSTERONE DECREASED
     Dosage: DAILY DOSE: 5 GRAM(S)
     Route: 062
     Dates: start: 20090801, end: 20100424
  3. ANDROGEL [Suspect]
     Dosage: DAILY DOSE: 7.5 GRAM(S); VIA PUMP
     Route: 062
     Dates: start: 20100424

REACTIONS (1)
  - GASTROINTESTINAL HAEMORRHAGE [None]
